FAERS Safety Report 10089321 (Version 1)
Quarter: 2014Q2

REPORT INFORMATION
  Report Type: Spontaneous
  Country: DE (occurrence: None)
  Receive Date: 20140417
  Receipt Date: 20140417
  Transmission Date: 20141212
  Serious: Yes (Death)
  Sender: FDA-Public Use
  Company Number: DE-AIKEM-000558

PATIENT
  Age: 40 Year
  Sex: Female
  Weight: 47 kg

DRUGS (9)
  1. LAMOTRIGINE (LAMOTRIGINE) [Suspect]
  2. ACETAZOLAMIDE [Suspect]
  3. AGOMELATINE [Suspect]
  4. LACOSAMIDE (LACOSAMIDE) [Suspect]
  5. LORAZEPAM (LORAZEPAM) [Suspect]
  6. CLOBAZAM (CLOBAZAM) [Suspect]
  7. LEVETIRACETAM (LEVETIRACETAM) [Suspect]
  8. CLONAZEPAM (CLONAZEPAM) (CLONAZEPAM) [Suspect]
  9. CITALOPRAM (CITALOPRAM) [Suspect]

REACTIONS (5)
  - Completed suicide [None]
  - Epilepsy [None]
  - Partial seizures [None]
  - Overdose [None]
  - Toxicity to various agents [None]
